FAERS Safety Report 6765228-4 (Version None)
Quarter: 2010Q2

REPORT INFORMATION
  Report Type: 
  Country: None (occurrence: None)
  Receive Date: 20100610
  Receipt Date: 20100610
  Transmission Date: 20101027
  Serious: Yes (Hospitalization)
  Sender: FDA-Public Use
  Company Number: None

PATIENT
  Sex: Male
  Weight: 114.7 kg

DRUGS (2)
  1. G-CSF (FILGRASTIM, AMGEN) [Suspect]
     Dosage: 4.8 MCG
     Dates: end: 20080717
  2. MELPHALAN HYDROCHLORIDE [Suspect]
     Dosage: 450 MG
     Dates: end: 20080701

REACTIONS (4)
  - ATRIAL FIBRILLATION [None]
  - CARDIAC ENZYMES INCREASED [None]
  - ELECTROCARDIOGRAM ST SEGMENT DEPRESSION [None]
  - HYPOTENSION [None]
